FAERS Safety Report 14327263 (Version 2)
Quarter: 2018Q2

REPORT INFORMATION
  Report Type: Report from Study
  Country: DE (occurrence: DE)
  Receive Date: 20171227
  Receipt Date: 20180423
  Transmission Date: 20180711
  Serious: Yes (Other)
  Sender: FDA-Public Use
  Company Number: DE-EMD SERONO-9003892

PATIENT
  Age: 36 Year
  Sex: Female
  Weight: 65 kg

DRUGS (2)
  1. GONAL-F [Suspect]
     Active Substance: FOLLITROPIN
     Indication: OVULATION INDUCTION
     Dosage: UNIT DOSE: 100 (UNSPECIFIED UNIT)
     Route: 058
     Dates: start: 20170912, end: 20170916
  2. GONAL-F [Suspect]
     Active Substance: FOLLITROPIN
     Dosage: UNIT DOSE: 150 (UNSPECIFIED UNIT)
     Route: 058
     Dates: start: 20170917, end: 20170920

REACTIONS (1)
  - Abortion spontaneous [Recovered/Resolved]

NARRATIVE: CASE EVENT DATE: 20171102
